FAERS Safety Report 13271836 (Version 1)
Quarter: 2017Q1

REPORT INFORMATION
  Report Type: Report from Study
  Country: GB (occurrence: GB)
  Receive Date: 20170227
  Receipt Date: 20170227
  Transmission Date: 20170428
  Serious: Yes (Other)
  Sender: FDA-Public Use
  Company Number: GB-ROCHE-1896009

PATIENT

DRUGS (5)
  1. CISPLATIN. [Suspect]
     Active Substance: CISPLATIN
     Indication: ANAL CANCER
     Route: 065
  2. CAPECITABINE. [Suspect]
     Active Substance: CAPECITABINE
     Indication: ANAL CANCER
     Route: 065
  3. 5-FLUOROURACIL [Suspect]
     Active Substance: FLUOROURACIL
     Indication: ANAL CANCER
     Route: 065
  4. ETOPOSIDE. [Suspect]
     Active Substance: ETOPOSIDE
     Indication: ANAL CANCER
     Route: 065
  5. MITOMYCIN. [Suspect]
     Active Substance: MITOMYCIN
     Indication: ANAL CANCER
     Route: 065

REACTIONS (11)
  - Stomatitis [Unknown]
  - Haemoglobin abnormal [Unknown]
  - Pain [Unknown]
  - Cardiotoxicity [Unknown]
  - Vomiting [Unknown]
  - Febrile neutropenia [Unknown]
  - Skin toxicity [Unknown]
  - Nausea [Unknown]
  - Diarrhoea [Unknown]
  - Neutrophil count abnormal [Unknown]
  - Platelet count abnormal [Unknown]
